FAERS Safety Report 11596325 (Version 2)
Quarter: 2015Q4

REPORT INFORMATION
  Report Type: Spontaneous
  Country: NL (occurrence: NL)
  Receive Date: 20151006
  Receipt Date: 20151105
  Transmission Date: 20160304
  Serious: Yes (Other)
  Sender: FDA-Public Use
  Company Number: NL-PFIZER INC-2015197640

PATIENT
  Age: 66 Year
  Sex: Female
  Weight: 97 kg

DRUGS (14)
  1. SOMAVERT [Suspect]
     Active Substance: PEGVISOMANT
     Dosage: 50 MG, WEEKLY
     Route: 058
     Dates: start: 20150630
  2. EUTHYROX [Concomitant]
     Active Substance: LEVOTHYROXINE SODIUM
     Indication: THYROIDECTOMY
     Dosage: 112 ?G, 1X/DAY
     Dates: start: 1998
  3. JANUVIA [Concomitant]
     Active Substance: SITAGLIPTIN PHOSPHATE
     Indication: DIABETES MELLITUS
     Dosage: 100 MG, 1X/DAY
  4. HYDROCORTISONE. [Concomitant]
     Active Substance: HYDROCORTISONE
     Dosage: 10 MG, 2X/DAY
  5. HYDROCORTISONE. [Concomitant]
     Active Substance: HYDROCORTISONE
     Dosage: 100 MG, INSTRUCTIONS HCP
  6. HYDROCORTISONE. [Concomitant]
     Active Substance: HYDROCORTISONE
     Indication: ADRENAL DISORDER
     Dosage: 5 MG, 1X/DAY
  7. HYPROMELLOSE [Concomitant]
     Active Substance: HYPROMELLOSES
     Dosage: 1-2 GTT, 4 - 5X/DAY
  8. METFORMINE HCL PCH [Concomitant]
     Indication: DIABETES MELLITUS
     Dosage: 1000 MG, 2X/DAY
  9. ALENCA D3 [Concomitant]
     Indication: BONE DISORDER
     Dosage: 700 MG/ 1000 MG/ 800IU, 1X/DAY
  10. ATORVASTATINE TEVA [Concomitant]
     Active Substance: ATORVASTATIN
     Indication: BLOOD CHOLESTEROL
     Dosage: 20 MG, 1X/DAY
  11. SOMAVERT [Suspect]
     Active Substance: PEGVISOMANT
     Indication: ACROMEGALY
     Dosage: 40 MG, WEEKLY
     Route: 058
     Dates: start: 20150401, end: 20150629
  12. SOMATULINE /01330101/ [Concomitant]
     Dosage: UNK
  13. FRAXIPARINE /01437701/ [Concomitant]
     Active Substance: NADROPARIN CALCIUM
     Dosage: 1 DF, SINGLE
  14. SANDOSTATINE /00821001/ [Concomitant]
     Active Substance: OCTREOTIDE ACETATE
     Dosage: UNK

REACTIONS (4)
  - Thrombophlebitis [Not Recovered/Not Resolved]
  - Haemorrhage [Recovered/Resolved with Sequelae]
  - Arthralgia [Not Recovered/Not Resolved]
  - Myalgia [Not Recovered/Not Resolved]

NARRATIVE: CASE EVENT DATE: 20150518
